FAERS Safety Report 10027590 (Version 3)
Quarter: 2014Q3

REPORT INFORMATION
  Report Type: Report from Study
  Country: CZ (occurrence: CZ)
  Receive Date: 20140321
  Receipt Date: 20140715
  Transmission Date: 20150326
  Serious: Yes (Other)
  Sender: FDA-Public Use
  Company Number: CZ-PFIZER INC-2014004221

PATIENT
  Age: 58 Year
  Sex: Male
  Weight: 104 kg

DRUGS (2)
  1. XGEVA [Concomitant]
     Active Substance: DENOSUMAB
     Dosage: 1 DF, MONTHLY
     Dates: start: 201311
  2. SUTENT [Suspect]
     Active Substance: SUNITINIB MALATE
     Indication: METASTATIC RENAL CELL CARCINOMA
     Dosage: 50 MG, CYCLIC (4 WEEKS ON, 2 WEEKS OFF)
     Route: 048
     Dates: start: 20131122, end: 201403

REACTIONS (21)
  - Skin ulcer [Recovered/Resolved]
  - Ageusia [Unknown]
  - Aphthous stomatitis [Unknown]
  - Back pain [Unknown]
  - Eye swelling [Unknown]
  - Pain of skin [Unknown]
  - Fatigue [Not Recovered/Not Resolved]
  - Yellow skin [Not Recovered/Not Resolved]
  - Arthralgia [Unknown]
  - Subcutaneous abscess [Unknown]
  - Mucosal inflammation [Unknown]
  - Decreased appetite [Not Recovered/Not Resolved]
  - Dry skin [Unknown]
  - Dyspepsia [Unknown]
  - Epistaxis [Not Recovered/Not Resolved]
  - Rash [Unknown]
  - Oedema peripheral [Unknown]
  - Gastrointestinal motility disorder [Unknown]
  - Hiccups [Unknown]
  - Dysgeusia [Unknown]
  - Varicose ulceration [Unknown]

NARRATIVE: CASE EVENT DATE: 20140627
